FAERS Safety Report 7266004-9 (Version None)
Quarter: 2011Q1

REPORT INFORMATION
  Report Type: 
  Country: None (occurrence: None)
  Receive Date: 20110131
  Receipt Date: 20110124
  Transmission Date: 20110831
  Serious: Yes (Death, Life-Threatening)
  Sender: FDA-Public Use
  Company Number: DE-JNJFOC-20090809527

PATIENT
  Age: 72 Year
  Sex: Female

DRUGS (4)
  1. CORVATON [Concomitant]
  2. TEGRETOL [Concomitant]
  3. REOPRO [Suspect]
     Indication: ILL-DEFINED DISORDER
     Route: 042
  4. REOPRO [Suspect]
     Route: 042

REACTIONS (3)
  - ATRIAL FLUTTER [None]
  - PNEUMONIA [None]
  - RENAL FAILURE ACUTE [None]
